FAERS Safety Report 18687955 (Version 1)
Quarter: 2020Q4

REPORT INFORMATION
  Report Type: Spontaneous
  Country: US (occurrence: US)
  Receive Date: 20201230
  Receipt Date: 20201230
  Transmission Date: 20210114
  Serious: Yes (Life-Threatening)
  Sender: FDA-Public Use
  Company Number: None

PATIENT
  Age: 65 Year
  Sex: Female
  Weight: 69 kg

DRUGS (1)
  1. PROTAMINE [Suspect]
     Active Substance: PROTAMINE

REACTIONS (4)
  - Lip swelling [None]
  - Face oedema [None]
  - Oxygen saturation decreased [None]
  - Haemodynamic instability [None]

NARRATIVE: CASE EVENT DATE: 20201214
